FAERS Safety Report 18254241 (Version 6)
Quarter: 2020Q4

REPORT INFORMATION
  Report Type: Report from Study
  Country: PL (occurrence: PL)
  Receive Date: 20200911
  Receipt Date: 20201211
  Transmission Date: 20210113
  Serious: Yes (Death, Life-Threatening, Hospitalization)
  Sender: FDA-Public Use
  Company Number: PL-ROCHE-2666716

PATIENT
  Age: 51 Year
  Sex: Female
  Weight: 62 kg

DRUGS (63)
  1. INTERFERON BETA-1A [Suspect]
     Active Substance: INTERFERON BETA-1A
     Indication: RELAPSING-REMITTING MULTIPLE SCLEROSIS
     Route: 058
     Dates: start: 20120725, end: 20120725
  2. OCRELIZUMAB. [Suspect]
     Active Substance: OCRELIZUMAB
     Indication: RELAPSING-REMITTING MULTIPLE SCLEROSIS
     Dosage: OLE-WEEK 0
     Route: 042
     Dates: start: 20140819, end: 20140819
  3. OCRELIZUMAB. [Suspect]
     Active Substance: OCRELIZUMAB
     Dosage: OLE-WEEK 216
     Route: 042
     Dates: start: 20181008, end: 20181008
  4. URO VAXOM [Concomitant]
     Active Substance: ESCHERICHIA COLI
     Dates: start: 20170827
  5. BETASERC [Concomitant]
     Active Substance: BETAHISTINE
     Indication: VERTIGO
     Dates: start: 20200803, end: 20200812
  6. TERTENSIF [Concomitant]
     Active Substance: INDAPAMIDE
     Indication: HYPERTENSION
     Dates: start: 20160512
  7. KALDYUM [Concomitant]
     Active Substance: POTASSIUM CHLORIDE
     Indication: PROPHYLAXIS
     Dates: start: 20160512
  8. BISOCARD [Concomitant]
     Active Substance: BISOPROLOL
     Indication: TACHYCARDIA PAROXYSMAL
     Dates: start: 20140111, end: 20140330
  9. FRAXIPARINE [Concomitant]
     Active Substance: NADROPARIN CALCIUM
     Dates: start: 20200813, end: 20200904
  10. PLACEBO [Suspect]
     Active Substance: UNSPECIFIED INGREDIENT
     Dosage: WEEK 72
     Route: 042
     Dates: start: 20140211, end: 20140211
  11. OCRELIZUMAB. [Suspect]
     Active Substance: OCRELIZUMAB
     Dosage: OLE-WEEK 72
     Route: 042
     Dates: start: 20160105, end: 20160105
  12. MERONEM [Concomitant]
     Active Substance: MEROPENEM
     Indication: URINARY TRACT INFECTION
     Dates: start: 20200810, end: 20200819
  13. CLEXANE [Concomitant]
     Active Substance: ENOXAPARIN SODIUM
     Dates: start: 20200803, end: 20200812
  14. DIUVER [Concomitant]
     Active Substance: TORSEMIDE
     Dates: start: 20200803, end: 20200904
  15. OCRELIZUMAB. [Suspect]
     Active Substance: OCRELIZUMAB
     Dosage: OLE-WEEK 24
     Route: 042
     Dates: start: 20150203, end: 20150203
  16. OCRELIZUMAB. [Suspect]
     Active Substance: OCRELIZUMAB
     Dosage: OLE-WEEK 264
     Route: 042
     Dates: start: 20190909, end: 20190909
  17. MARVELON [Concomitant]
     Active Substance: DESOGESTREL\ETHINYL ESTRADIOL
     Dates: start: 201105
  18. XALATAN [Concomitant]
     Active Substance: LATANOPROST
     Indication: GLAUCOMA
     Dates: start: 2010
  19. KALDYUM [Concomitant]
     Active Substance: POTASSIUM CHLORIDE
     Dates: start: 20200803, end: 20200812
  20. MAGNE B6 [Concomitant]
     Active Substance: MAGNESIUM\PYRIDOXINE
     Indication: PROPHYLAXIS
     Dates: start: 20200523
  21. BACLOFEN. [Concomitant]
     Active Substance: BACLOFEN
     Dates: start: 20200509
  22. BIOTRAKSON [Concomitant]
     Active Substance: CEFTRIAXONE SODIUM
     Indication: URINARY TRACT INFECTION
     Dates: start: 20200803, end: 20200807
  23. PERFALGAN [Concomitant]
     Active Substance: ACETAMINOPHEN
     Dates: start: 20200812, end: 20200904
  24. AMLODIPINE [Concomitant]
     Active Substance: AMLODIPINE BESYLATE
     Indication: HYPERTENSION
     Dates: start: 20200902, end: 20200903
  25. OCRELIZUMAB. [Suspect]
     Active Substance: OCRELIZUMAB
     Dosage: OLE-WEEK 144
     Route: 042
     Dates: start: 20170523, end: 20170523
  26. COSOPT [Concomitant]
     Active Substance: DORZOLAMIDE HYDROCHLORIDE\TIMOLOL MALEATE
     Indication: GLAUCOMA
     Dosage: 1 DROP
     Dates: start: 2010
  27. VIVACOR [CARVEDILOL] [Concomitant]
     Indication: HYPERTENSION
     Dates: start: 20160512
  28. KALDYUM [Concomitant]
     Active Substance: POTASSIUM CHLORIDE
     Dates: start: 20200124, end: 20200129
  29. AMOKSIKLAV [Concomitant]
     Active Substance: AMOXICILLIN\CLAVULANATE POTASSIUM
     Indication: URINARY TRACT INFECTION
     Dates: start: 20200807, end: 20200810
  30. CONTROLOC [Concomitant]
     Active Substance: PANTOPRAZOLE SODIUM
     Dates: start: 20200824, end: 20200904
  31. CLONAZEPAM. [Concomitant]
     Active Substance: CLONAZEPAM
     Dates: start: 20200812, end: 20200822
  32. HALOPERIDOL. [Concomitant]
     Active Substance: HALOPERIDOL
     Dates: start: 20200824, end: 20200829
  33. OCRELIZUMAB. [Suspect]
     Active Substance: OCRELIZUMAB
     Dosage: OLE-WEEK 192
     Route: 042
     Dates: start: 20180424, end: 20180424
  34. AMLOPIN [Concomitant]
     Indication: HYPERTENSION
     Dates: start: 20140111, end: 20140613
  35. KALDYUM [Concomitant]
     Active Substance: POTASSIUM CHLORIDE
     Indication: HYPOKALAEMIA
     Dates: start: 20190319
  36. CONCOR COR [Concomitant]
     Active Substance: BISOPROLOL FUMARATE
     Indication: TACHYCARDIA PAROXYSMAL
     Dates: start: 20140401
  37. DEVIKAP [Concomitant]
     Dosage: 4 DROPS
     Dates: start: 20200812, end: 20200903
  38. OCRELIZUMAB. [Suspect]
     Active Substance: OCRELIZUMAB
     Dosage: OLE-WEEK 48
     Route: 042
     Dates: start: 20150721, end: 20150721
  39. OCRELIZUMAB. [Suspect]
     Active Substance: OCRELIZUMAB
     Dosage: OLE-WEEK 120
     Route: 042
     Dates: start: 20161213, end: 20161213
  40. OCRELIZUMAB. [Suspect]
     Active Substance: OCRELIZUMAB
     Dosage: OLE-WEEK 168
     Route: 042
     Dates: start: 20171107, end: 20171107
  41. AMLOPIN [Concomitant]
     Dates: start: 20140614, end: 20140623
  42. BISOCARD [Concomitant]
     Active Substance: BISOPROLOL
     Indication: PROPHYLAXIS
     Dates: start: 20200509
  43. LAKCID FORTE [Concomitant]
     Dosage: 1 CAPSULE
     Dates: start: 20200822, end: 20200904
  44. PLACEBO [Suspect]
     Active Substance: UNSPECIFIED INGREDIENT
     Dosage: WEEK 2
     Route: 042
     Dates: start: 20121008, end: 20121008
  45. PLACEBO [Suspect]
     Active Substance: UNSPECIFIED INGREDIENT
     Dosage: WEEK 24
     Route: 042
     Dates: start: 20130312, end: 20130312
  46. INTERFERON BETA-1A [Suspect]
     Active Substance: INTERFERON BETA-1A
     Route: 058
     Dates: start: 20121006, end: 20121006
  47. OCRELIZUMAB. [Suspect]
     Active Substance: OCRELIZUMAB
     Dosage: WEEK 2
     Route: 042
     Dates: start: 20140902, end: 20140902
  48. OCRELIZUMAB. [Suspect]
     Active Substance: OCRELIZUMAB
     Dosage: OLE-WEEK 96
     Route: 042
     Dates: start: 20160621, end: 20160621
  49. OCRELIZUMAB. [Suspect]
     Active Substance: OCRELIZUMAB
     Dosage: OLE-WEEK 240
     Route: 042
     Dates: start: 20190328, end: 20190328
  50. BETASERC [Concomitant]
     Active Substance: BETAHISTINE
     Indication: HYPOACUSIS
     Dates: start: 20200309
  51. LOSARTIC [Concomitant]
     Active Substance: LOSARTAN POTASSIUM
     Indication: HYPERTENSION
     Dates: start: 20081013
  52. TORASEMIDE [Concomitant]
     Active Substance: TORSEMIDE
     Indication: PERIPHERAL SWELLING
     Dates: start: 20190311
  53. PREGABALIN. [Concomitant]
     Active Substance: PREGABALIN
     Dates: start: 20200509
  54. FLUCOFAST [Concomitant]
     Indication: URINARY TRACT INFECTION
     Dates: start: 20200806, end: 20200810
  55. PLACEBO [Suspect]
     Active Substance: UNSPECIFIED INGREDIENT
     Indication: RELAPSING-REMITTING MULTIPLE SCLEROSIS
     Dosage: BASELINE (WEEK 1)?ON DAYS 1 AND 15 FOR THE FIRST DOSE AND AS A SINGLE INFUSION FOR ALL SUBSEQUENT IN
     Route: 042
     Dates: start: 20120925, end: 20120925
  56. PLACEBO [Suspect]
     Active Substance: UNSPECIFIED INGREDIENT
     Dosage: WEEK 48
     Route: 042
     Dates: start: 20130827, end: 20130827
  57. OCRELIZUMAB. [Suspect]
     Active Substance: OCRELIZUMAB
     Dosage: OLE-WEEK 288
     Route: 042
     Dates: start: 20200218, end: 20200218
  58. URO VAXOM [Concomitant]
     Active Substance: ESCHERICHIA COLI
     Indication: PROPHYLAXIS
     Dates: start: 20170220, end: 20170520
  59. ALLOPURINOL. [Concomitant]
     Active Substance: ALLOPURINOL
     Indication: GOUT
     Dates: start: 20190319
  60. AMLOPIN [Concomitant]
     Dates: start: 20140624
  61. PREGABALIN. [Concomitant]
     Active Substance: PREGABALIN
     Dates: start: 20200509
  62. HYDROXYZINUM [Concomitant]
     Active Substance: HYDROXYZINE HYDROCHLORIDE
     Dates: start: 20200812, end: 20200822
  63. SPIRONOLAKTON [Concomitant]
     Active Substance: SPIRONOLACTONE
     Indication: HYPERTENSION
     Dates: start: 20200827, end: 20200903

REACTIONS (4)
  - COVID-19 [Not Recovered/Not Resolved]
  - Encephalitis [Not Recovered/Not Resolved]
  - Acute hepatic failure [Fatal]
  - Neurological symptom [Not Recovered/Not Resolved]

NARRATIVE: CASE EVENT DATE: 20200722
